FAERS Safety Report 10429448 (Version 5)
Quarter: 2016Q1

REPORT INFORMATION
  Report Type: Spontaneous
  Country: US (occurrence: US)
  Receive Date: 20140904
  Receipt Date: 20160127
  Transmission Date: 20160525
  Serious: No
  Sender: FDA-Public Use
  Company Number: US-PFIZER INC-2014245821

PATIENT
  Age: 75 Year
  Sex: Female
  Weight: 57 kg

DRUGS (1)
  1. GABAPENTIN. [Suspect]
     Active Substance: GABAPENTIN
     Indication: PROCEDURAL PAIN
     Dosage: 800 MG, 4X/DAY

REACTIONS (6)
  - Intentional underdose [Unknown]
  - Drug effect incomplete [Unknown]
  - Migraine [Recovered/Resolved]
  - Drug hypersensitivity [Unknown]
  - Drug intolerance [Unknown]
  - Headache [Recovered/Resolved]
